FAERS Safety Report 5266697-1 (Version None)
Quarter: 2007Q1

REPORT INFORMATION
  Report Type: 
  Country: None (occurrence: None)
  Receive Date: 20070312
  Receipt Date: 20070306
  Transmission Date: 20070707
  Serious: Yes (Death, Other)
  Sender: FDA-Public Use
  Company Number: 055-C5013-07030317

PATIENT
  Age: 68 Year
  Sex: Female
  Weight: 69 kg

DRUGS (7)
  1. CC-5013 (LENALIDOMIDE) (CAPSULES) [Suspect]
     Indication: MYELODYSPLASTIC SYNDROME
     Dosage: 10 MG, PER ORAL
     Route: 048
     Dates: start: 20070219, end: 20070304
  2. LIPITOR [Suspect]
     Indication: DRUG USE FOR UNKNOWN INDICATION
  3. PRIMASPAN (ACETYLSALICYLIC ACID) [Concomitant]
  4. ORMOX (ISOSORBIDE MONONITRATE) [Concomitant]
  5. EMCONCOR (BISOPROLOL) [Concomitant]
  6. RAMIPRIL [Concomitant]
  7. FOSAMAX [Concomitant]

REACTIONS (3)
  - ANAEMIA [None]
  - FIBRIN D DIMER INCREASED [None]
  - OEDEMA PERIPHERAL [None]
